FAERS Safety Report 4599562-3 (Version None)
Quarter: 2005Q1

REPORT INFORMATION
  Report Type: 
  Country: None (occurrence: None)
  Receive Date: 20050307
  Receipt Date: 20050216
  Transmission Date: 20050727
  Serious: Yes (Hospitalization)
  Sender: FDA-Public Use
  Company Number: 200510403EU

PATIENT
  Age: 19 Year
  Sex: Male

DRUGS (4)
  1. KETEK [Suspect]
     Indication: TONSILLAR DISORDER
     Route: 048
     Dates: start: 20050215, end: 20050215
  2. METHYLPREDNISOLONE [Suspect]
  3. BETAMETHASONE [Concomitant]
  4. IMMUNOSTIMULANTS [Concomitant]

REACTIONS (3)
  - ASTHENIA [None]
  - HYPOKALAEMIA [None]
  - MULTIPLE DRUG OVERDOSE [None]
